FAERS Safety Report 6788845-4 (Version None)
Quarter: 2010Q2

REPORT INFORMATION
  Report Type: 
  Country: None (occurrence: None)
  Receive Date: 20100623
  Receipt Date: 20080610
  Transmission Date: 20101027
  Serious: No
  Sender: FDA-Public Use
  Company Number: US-PFIZER INC-2008042116

PATIENT
  Sex: Female
  Weight: 77 kg

DRUGS (4)
  1. AROMASIN [Suspect]
     Indication: BREAST CANCER
     Dates: start: 20070101
  2. CALCIUM CARBONATE [Concomitant]
  3. VITAMIN D [Concomitant]
     Dosage: 1XDAY
  4. FIORICET [Concomitant]

REACTIONS (2)
  - BLOOD CHOLESTEROL INCREASED [None]
  - HOT FLUSH [None]
